FAERS Safety Report 9458801 (Version 3)
Quarter: 2013Q4

REPORT INFORMATION
  Report Type: Spontaneous
  Country: TR (occurrence: TR)
  Receive Date: 20130814
  Receipt Date: 20131219
  Transmission Date: 20140711
  Serious: Yes (Other)
  Sender: FDA-Public Use
  Company Number: TR-MPIJNJ-2013-05940

PATIENT
  Sex: 0

DRUGS (3)
  1. VELCADE [Suspect]
     Indication: PLASMA CELL MYELOMA
  2. CYCLOPHOSPHAMIDE [Suspect]
     Indication: PLASMA CELL MYELOMA
  3. DEXAMETHASONE [Suspect]
     Indication: PLASMA CELL MYELOMA

REACTIONS (4)
  - Nocardiosis [Unknown]
  - Hypogammaglobulinaemia [Unknown]
  - Epilepsy [Unknown]
  - Lymphopenia [Unknown]
